FAERS Safety Report 8997066 (Version 2)
Quarter: 2013Q2

REPORT INFORMATION
  Report Type: Spontaneous
  Country: DK (occurrence: DK)
  Receive Date: 20130104
  Receipt Date: 20130513
  Transmission Date: 20140414
  Serious: Yes (Disabling, Other)
  Sender: FDA-Public Use
  Company Number: DK-ABBOTT-12P-044-1029034-00

PATIENT
  Sex: Female

DRUGS (7)
  1. HUMIRA [Suspect]
     Indication: RHEUMATOID ARTHRITIS
     Dates: start: 20050518, end: 20100318
  2. ENBREL [Suspect]
     Indication: RHEUMATOID ARTHRITIS
     Dates: start: 20120718, end: 20121220
  3. REMICADE [Suspect]
     Indication: RHEUMATOID ARTHRITIS
     Dates: start: 20020627, end: 20050316
  4. METHOTREXATE [Suspect]
     Indication: RHEUMATOID ARTHRITIS
     Dates: start: 20020627, end: 20061023
  5. METOPROLOL SUCCINATE [Concomitant]
     Indication: PRODUCT USED FOR UNKNOWN INDICATION
  6. HJERTEMAGNYL [Concomitant]
     Indication: PRODUCT USED FOR UNKNOWN INDICATION
  7. CORODIL [Concomitant]
     Indication: PRODUCT USED FOR UNKNOWN INDICATION

REACTIONS (3)
  - Weight decreased [Unknown]
  - Splenomegaly [Not Recovered/Not Resolved]
  - Pancytopenia [Recovering/Resolving]
